FAERS Safety Report 9512182 (Version 1)
Quarter: 2013Q1

REPORT INFORMATION
  Report Type: Spontaneous
  Country: US (occurrence: None)
  Receive Date: 20130305
  Receipt Date: 20130305
  Transmission Date: 20140127
  Serious: Yes (Other)
  Sender: FDA-Public Use
  Company Number: 163-21880-12092453

PATIENT
  Age: 81 Year
  Sex: Male
  Weight: 63.96 kg

DRUGS (15)
  1. ASPIRIN (ACETYLSALICYLIC ACID) [Concomitant]
     Dosage: 10 MG, 21 IN 28 D, PO
  2. DOCUSATE SOD (DOCUSATE SODIUM) (UNKNOWN) [Concomitant]
  3. FINASTERIDE (FINASTERIDE) (UNKNOWN) [Concomitant]
  4. FOLIC ACID (FOLIC ACID) (UNKNOWN) [Concomitant]
  5. GABAPENTIN (GABAPENTIN) (UNKNOWN) (GABAPENTIN) [Concomitant]
  6. GLUCOSAMINE (GLUCOSAMINE) (UNKNOWN) [Concomitant]
  7. LIDOCAINE (LIDOCAINE) (UNKNOWN) [Concomitant]
  8. OMEPRAZOLE (OMEPRAZOLE) (UNKNOWN) [Concomitant]
  9. OXYCODONE (OXYCODONE) (UNKNOWN) (OXYCODONE) [Concomitant]
  10. OXYCONTIN (OXYCODONE HYDROCHLORIDE) (UNKNOWN) [Concomitant]
  11. POLYETH GLYC (MACROGOL) (POWER) [Concomitant]
  12. POTASSIUM (POTASSIUM) (POWDER) [Concomitant]
  13. TAMSULOSIN (TAMSULOSIN) (POWDER) [Concomitant]
  14. VITAMIN D (ERGOCALCIFEROL) (POWDER) [Concomitant]
  15. REVLIMID [Suspect]
     Dosage: 10 MG, 21 IN 28 D, PO
     Route: 048

REACTIONS (1)
  - Joint swelling [None]
